FAERS Safety Report 5595815-0 (Version None)
Quarter: 2008Q1

REPORT INFORMATION
  Report Type: 
  Country: None (occurrence: None)
  Receive Date: 20080118
  Receipt Date: 20080110
  Transmission Date: 20080703
  Serious: Yes (Other)
  Sender: FDA-Public Use
  Company Number: US-ROCHE-540548

PATIENT
  Age: 46 Year
  Sex: Male

DRUGS (2)
  1. PEGASYS [Suspect]
     Indication: DRUG USE FOR UNKNOWN INDICATION
     Dosage: REPORTED PATIENT HAS BEEN ON PEGASYS-COPEGUS THERAPY FOR ABOUT SIX TO EIGHT WEEKS
     Route: 065
     Dates: start: 20071115
  2. COPEGUS [Suspect]
     Indication: DRUG USE FOR UNKNOWN INDICATION
     Dosage: REPORTED PATIENT HAS BEEN ON PEGASYS-COPEGUS THERAPY FOR ABOUT SIX TO EIGHT WEEKS
     Route: 065
     Dates: start: 20071115

REACTIONS (1)
  - CONVULSION [None]
